FAERS Safety Report 8983761 (Version 1)
Quarter: 2012Q4

REPORT INFORMATION
  Report Type: 
  Country: NO (occurrence: NO)
  Receive Date: 20121224
  Receipt Date: 20121224
  Transmission Date: 20130627
  Serious: Yes (Hospitalization)
  Sender: FDA-Public Use
  Company Number: NO-ROCHE-1168135

PATIENT
  Age: 36 Year
  Sex: Female
  Weight: 80 kg

DRUGS (7)
  1. ROACTEMRA [Suspect]
     Indication: RHEUMATOID ARTHRITIS
     Dosage: Concentrate for solution for infusion
     Route: 042
     Dates: start: 20100210
  2. CETIRIZIN [Concomitant]
     Indication: HYPERSENSITIVITY
     Route: 065
     Dates: start: 19930601
  3. CALCIGRAN FORTE [Concomitant]
     Indication: OSTEOPOROSIS PROPHYLAXIS
     Route: 048
     Dates: start: 20091214
  4. INEXIUM [Concomitant]
     Indication: DUODENAL ULCER
     Dosage: 20 mg per day up to January 2011
     Route: 048
     Dates: start: 20040301
  5. TRIOBE [Concomitant]
     Route: 065
     Dates: start: 20091214
  6. ARCOXIA [Concomitant]
     Indication: PAIN
     Dosage: Dosing is once or twice daily
     Route: 065
     Dates: start: 20120506
  7. PARACET [Concomitant]
     Indication: AFTERBIRTH PAIN
     Route: 065
     Dates: start: 19990101

REACTIONS (7)
  - Weight increased [Not Recovered/Not Resolved]
  - Gastrointestinal pain [Not Recovered/Not Resolved]
  - Diaphragmatic hernia [Not Recovered/Not Resolved]
  - Flatulence [Not Recovered/Not Resolved]
  - Abdominal pain upper [Not Recovered/Not Resolved]
  - Pruritus [Not Recovered/Not Resolved]
  - Rash pruritic [Not Recovered/Not Resolved]
